FAERS Safety Report 10048850 (Version 2)
Quarter: 2014Q1

REPORT INFORMATION
  Report Type: Report from Study
  Country: TR (occurrence: TR)
  Receive Date: 20140331
  Receipt Date: 20140331
  Transmission Date: 20141002
  Serious: Yes (Hospitalization)
  Sender: FDA-Public Use
  Company Number: TR-US-EMD SERONO, INC.-7239800

PATIENT
  Sex: Male
  Weight: 30 kg

DRUGS (7)
  1. SAIZEN [Suspect]
     Indication: GROWTH HORMONE DEFICIENCY
     Route: 058
     Dates: start: 201304, end: 201308
  2. SAIZEN [Suspect]
     Route: 058
     Dates: start: 201311, end: 20140305
  3. LEVOTIRON [Suspect]
     Indication: THYROID FUNCTION TEST ABNORMAL
     Route: 048
     Dates: start: 2008
  4. ROCALTROL [Suspect]
     Indication: PRODUCT USED FOR UNKNOWN INDICATION
     Route: 048
     Dates: start: 2008
  5. TRIFLUCAN [Suspect]
     Indication: PRODUCT USED FOR UNKNOWN INDICATION
     Route: 048
     Dates: start: 2008
  6. VALTREX [Suspect]
     Indication: PRODUCT USED FOR UNKNOWN INDICATION
     Route: 048
     Dates: start: 201311
  7. CIPRO                              /00697201/ [Concomitant]
     Indication: ANTIBIOTIC THERAPY
     Route: 048
     Dates: start: 201311

REACTIONS (6)
  - Vomiting [Unknown]
  - Weight decreased [Recovered/Resolved]
  - Diarrhoea [Unknown]
  - Asthenia [Unknown]
  - Abdominal pain upper [Not Recovered/Not Resolved]
  - Nausea [Recovered/Resolved]
